FAERS Safety Report 5475749-2 (Version None)
Quarter: 2007Q4

REPORT INFORMATION
  Report Type: 
  Country: None (occurrence: None)
  Receive Date: 20071003
  Receipt Date: 20070924
  Transmission Date: 20080405
  Serious: Yes (Hospitalization)
  Sender: FDA-Public Use
  Company Number: US-ABBOTT-07P-163-0418109-00

PATIENT
  Sex: Female
  Weight: 45.4 kg

DRUGS (2)
  1. HUMIRA [Suspect]
     Indication: CROHN'S DISEASE
     Route: 058
     Dates: start: 20070401, end: 20070701
  2. PARACETAMOL [Concomitant]
     Indication: POSTOPERATIVE ANALGESIA

REACTIONS (6)
  - ASTHENIA [None]
  - DYSSTASIA [None]
  - INTESTINAL RESECTION [None]
  - PAIN [None]
  - PROCEDURAL PAIN [None]
  - WEIGHT DECREASED [None]
